FAERS Safety Report 11715353 (Version 4)
Quarter: 2016Q1

REPORT INFORMATION
  Report Type: Spontaneous
  Country: DE (occurrence: DE)
  Receive Date: 20151109
  Receipt Date: 20160322
  Transmission Date: 20160525
  Serious: Yes (Hospitalization, Disabling, Other)
  Sender: FDA-Public Use
  Company Number: DE-JNJFOC-20151105973

PATIENT
  Sex: Female

DRUGS (17)
  1. LIMPTAR N [Concomitant]
     Route: 065
  2. AMILORID COMP. [Concomitant]
     Dosage: 5/15MG
     Route: 065
  3. GINGIUM [Concomitant]
     Active Substance: GINKGO BILOBA LEAF EXTRACT
     Route: 065
  4. CETEBE [Concomitant]
     Route: 065
  5. METHOTREXATE (METHOTREXATE SODIUM) [Concomitant]
     Active Substance: METHOTREXATE SODIUM
     Route: 065
  6. CETIRIZIN [Concomitant]
     Active Substance: CETIRIZINE HYDROCHLORIDE
     Route: 065
  7. L-THYROXIN [Concomitant]
     Active Substance: LEVOTHYROXINE SODIUM
     Route: 065
  8. DEKRISTOL [Concomitant]
     Active Substance: CHOLECALCIFEROL
     Route: 065
  9. CALCIUM SANDOZ D [Concomitant]
     Route: 065
  10. ARCOXIA [Concomitant]
     Active Substance: ETORICOXIB
     Route: 065
  11. TILIDIN COMP [Concomitant]
     Active Substance: NALOXONE HYDROCHLORIDE\TILIDINE HYDROCHLORIDE
     Dosage: 200/16MG
     Route: 065
  12. REMICADE [Suspect]
     Active Substance: INFLIXIMAB
     Indication: RHEUMATOID ARTHRITIS
     Route: 042
     Dates: start: 2000, end: 2015
  13. KATADOLON [Concomitant]
     Active Substance: FLUPIRTINE
     Route: 065
  14. FOLIC ACID. [Concomitant]
     Active Substance: FOLIC ACID
     Route: 065
  15. PANTOPRAZOL [Concomitant]
     Active Substance: PANTOPRAZOLE SODIUM
     Route: 065
  16. MAGNESIUM ULTRA [Concomitant]
     Route: 065
  17. VALORAN [Concomitant]
     Route: 065

REACTIONS (3)
  - Basal cell carcinoma [Recovered/Resolved with Sequelae]
  - Bowen^s disease [Recovered/Resolved with Sequelae]
  - Actinic keratosis [Recovered/Resolved with Sequelae]

NARRATIVE: CASE EVENT DATE: 2003
